FAERS Safety Report 24984128 (Version 1)
Quarter: 2025Q1

REPORT INFORMATION
  Report Type: Spontaneous
  Country: BE (occurrence: BE)
  Receive Date: 20250219
  Receipt Date: 20250219
  Transmission Date: 20250408
  Serious: Yes (Other)
  Sender: ROCHE
  Company Number: BE-002147023-NVSC2025BE026390

PATIENT
  Sex: Female

DRUGS (1)
  1. LUCENTIS [Suspect]
     Active Substance: RANIBIZUMAB
     Indication: Product use in unapproved indication
     Dosage: UNK, QMO
     Route: 050
     Dates: start: 2016

REACTIONS (3)
  - Detachment of retinal pigment epithelium [Recovering/Resolving]
  - Retinal drusen [Unknown]
  - Drug ineffective [Unknown]

NARRATIVE: CASE EVENT DATE: 20180901
